FAERS Safety Report 15130482 (Version 1)
Quarter: 2018Q3

REPORT INFORMATION
  Report Type: Spontaneous
  Country: AU (occurrence: AU)
  Receive Date: 20180711
  Receipt Date: 20180711
  Transmission Date: 20181010
  Serious: Yes (Other)
  Sender: FDA-Public Use
  Company Number: AU-ALLERGAN-1834460US

PATIENT

DRUGS (1)
  1. ETIDRONATE DISODIUM UNK [Suspect]
     Active Substance: ETIDRONATE DISODIUM
     Indication: PERI-SPINAL HETEROTOPIC OSSIFICATION
     Dosage: 18 MG/KG/QD
     Route: 065

REACTIONS (2)
  - Renal failure [Unknown]
  - Off label use [Unknown]
